FAERS Safety Report 9308198 (Version 4)
Quarter: 2013Q3

REPORT INFORMATION
  Report Type: Spontaneous
  Country: SE (occurrence: SE)
  Receive Date: 20130524
  Receipt Date: 20130827
  Transmission Date: 20140515
  Serious: Yes (Other)
  Sender: FDA-Public Use
  Company Number: SE-AMGEN-SWESP2013035868

PATIENT
  Age: 78 Year
  Sex: Male

DRUGS (13)
  1. XGEVA [Suspect]
     Indication: PROSTATE CANCER
     Dosage: 120 MG, Q4WK
     Route: 058
     Dates: start: 20121015, end: 20130619
  2. XGEVA [Suspect]
     Indication: METASTASES TO BONE
  3. CALCIUM [Concomitant]
     Dosage: 500 MG, BID
     Dates: start: 20121101
  4. CALCIUM [Concomitant]
     Dosage: 500 MG, QD
     Dates: start: 20130514
  5. ENALAPRIL [Concomitant]
  6. FURIX [Concomitant]
  7. CALCICHEW D3 [Concomitant]
     Dosage: 500 MG/ 400 IU X2
  8. INNOHEP [Concomitant]
  9. SPIRONOLACTONE [Concomitant]
  10. SIMVASTATIN [Concomitant]
     Dosage: UNK
     Dates: start: 20120524
  11. LASIX                              /00032601/ [Concomitant]
     Dosage: UNK
     Dates: start: 20120524
  12. TROMBYL [Concomitant]
     Dosage: UNK
     Dates: start: 20120524
  13. CASODEX [Concomitant]
     Dosage: UNK
     Dates: start: 20120524

REACTIONS (6)
  - Oedema [Recovering/Resolving]
  - Asthenia [Recovering/Resolving]
  - Cardiac failure congestive [Recovering/Resolving]
  - Dyspnoea [Recovering/Resolving]
  - Hypercalcaemia [Recovered/Resolved]
  - Blood calcium abnormal [Recovered/Resolved]
